FAERS Safety Report 21657787 (Version 1)
Quarter: 2022Q4

REPORT INFORMATION
  Report Type: Report from Study
  Country: CA (occurrence: CA)
  Receive Date: 20221129
  Receipt Date: 20221129
  Transmission Date: 20230113
  Serious: Yes (Hospitalization, Other)
  Sender: FDA-Public Use
  Company Number: CA-TAKEDA-2022TUS089868

PATIENT
  Age: 65 Year
  Sex: Male

DRUGS (1)
  1. HUMAN IMMUNOGLOBULIN G [Suspect]
     Active Substance: HUMAN IMMUNOGLOBULIN G
     Indication: Secondary immunodeficiency
     Dosage: 17 GRAM, 1/WEEK
     Route: 058
     Dates: start: 20180708

REACTIONS (2)
  - Pneumonia [Recovered/Resolved]
  - Blood immunoglobulin G increased [Recovered/Resolved]

NARRATIVE: CASE EVENT DATE: 20220101
